FAERS Safety Report 4304208-5 (Version None)
Quarter: 2004Q1

REPORT INFORMATION
  Report Type: 
  Country: None (occurrence: None)
  Receive Date: 20040224
  Receipt Date: 20040212
  Transmission Date: 20041129
  Serious: Yes (Hospitalization, Disabling)
  Sender: FDA-Public Use
  Company Number: US-JNJFOC-20031105222

PATIENT
  Age: 65 Year
  Sex: Male
  Weight: 50.8029 kg

DRUGS (5)
  1. REMICADE [Suspect]
     Indication: RHEUMATOID ARTHRITIS
     Dosage: 7 MG/KG, 1 IN 6 WEEK, INTRAVENOUS
     Route: 042
     Dates: start: 20031017
  2. PREDNISONE [Concomitant]
  3. BACTRIM DS [Concomitant]
  4. PLAQUENIL [Concomitant]
  5. IMURAN [Concomitant]

REACTIONS (3)
  - ACTINOMYCOSIS [None]
  - CULTURE POSITIVE [None]
  - NOCARDIOSIS [None]
